FAERS Safety Report 14753471 (Version 1)
Quarter: 2018Q2

REPORT INFORMATION
  Report Type: Spontaneous
  Country: US (occurrence: US)
  Receive Date: 20180410
  Receipt Date: 20180410
  Transmission Date: 20180711
  Serious: Yes (Death)
  Sender: FDA-Public Use
  Company Number: None

PATIENT
  Age: 63 Year
  Sex: Male
  Weight: 56.7 kg

DRUGS (3)
  1. FLOMAX [Concomitant]
     Active Substance: TAMSULOSIN HYDROCHLORIDE
  2. RED BALI KRATOM [Suspect]
     Active Substance: MITRAGYNINE\HERBALS
     Indication: DRUG WITHDRAWAL SYNDROME
  3. RED BALI KRATOM [Suspect]
     Active Substance: MITRAGYNINE\HERBALS
     Indication: PAIN
     Route: 048
     Dates: start: 20180404, end: 20180409

REACTIONS (1)
  - Chest pain [None]

NARRATIVE: CASE EVENT DATE: 20180409
